FAERS Safety Report 18222262 (Version 1)
Quarter: 2020Q3

REPORT INFORMATION
  Report Type: Spontaneous
  Country: US (occurrence: US)
  Receive Date: 20200901
  Receipt Date: 20200901
  Transmission Date: 20201103
  Serious: Yes (Death)
  Sender: FDA-Public Use
  Company Number: None

PATIENT
  Age: 67 Year
  Sex: Female

DRUGS (11)
  1. FUROSEMIDE. [Concomitant]
     Active Substance: FUROSEMIDE
  2. METHOTREXATE. [Concomitant]
     Active Substance: METHOTREXATE
  3. OMEPRAZOLE. [Concomitant]
     Active Substance: OMEPRAZOLE
  4. FOLIC ACID. [Concomitant]
     Active Substance: FOLIC ACID
  5. REVATIO [Concomitant]
     Active Substance: SILDENAFIL CITRATE
  6. SPIRONOLACT [Concomitant]
     Active Substance: SPIRONOLACTONE
  7. TADALAFIL 20MG TAB [Suspect]
     Active Substance: TADALAFIL
     Indication: PULMONARY ARTERIAL HYPERTENSION
     Route: 048
     Dates: start: 20170202, end: 20200806
  8. CRESTOR [Concomitant]
     Active Substance: ROSUVASTATIN CALCIUM
  9. METOPROLOL. [Concomitant]
     Active Substance: METOPROLOL
  10. REMODULIN [Concomitant]
     Active Substance: TREPROSTINIL
  11. ELIQUIS [Concomitant]
     Active Substance: APIXABAN

REACTIONS (1)
  - Death [None]

NARRATIVE: CASE EVENT DATE: 20200806
